FAERS Safety Report 8978961 (Version 1)
Quarter: 2012Q4

REPORT INFORMATION
  Report Type: 
  Country: JP (occurrence: JP)
  Receive Date: 20121221
  Receipt Date: 20121221
  Transmission Date: 20130627
  Serious: Yes (Other)
  Sender: FDA-Public Use
  Company Number: JP-B.I. PHARMACEUTICALS,INC./RIDGEFIELD-2012-BI-03439NB

PATIENT
  Age: 80 Year

DRUGS (2)
  1. PRADAXA [Suspect]
     Dosage: 220 mg
     Route: 065
  2. PRADAXA [Suspect]
     Dosage: 220 mg
     Route: 065

REACTIONS (3)
  - Colitis ischaemic [Unknown]
  - Activated partial thromboplastin time prolonged [Unknown]
  - Haemoglobin decreased [Unknown]
